FAERS Safety Report 7216354-7 (Version None)
Quarter: 2011Q1

REPORT INFORMATION
  Report Type: 
  Country: None (occurrence: None)
  Receive Date: 20110107
  Receipt Date: 20110104
  Transmission Date: 20110831
  Serious: Yes (Hospitalization)
  Sender: FDA-Public Use
  Company Number: CA-ABBOTT-10P-028-0681733-00

PATIENT
  Sex: Female
  Weight: 56 kg

DRUGS (5)
  1. MAVIK [Suspect]
     Dosage: 4 MG
     Dates: start: 20101026
  2. MOBICOX [Concomitant]
     Indication: PRODUCT USED FOR UNKNOWN INDICATION
  3. ASPIRIN [Concomitant]
     Indication: PRODUCT USED FOR UNKNOWN INDICATION
  4. MAVIK [Suspect]
     Indication: ESSENTIAL HYPERTENSION
     Dosage: 2 MG DAILY
     Dates: start: 20100722
  5. LIPITOR [Concomitant]
     Indication: PRODUCT USED FOR UNKNOWN INDICATION
     Dosage: 20 MG

REACTIONS (3)
  - PALPITATIONS [None]
  - CHEST DISCOMFORT [None]
  - ATRIAL FIBRILLATION [None]
